FAERS Safety Report 8158660-8 (Version None)
Quarter: 2012Q1

REPORT INFORMATION
  Report Type: 
  Country: None (occurrence: None)
  Receive Date: 20120217
  Receipt Date: 20120203
  Transmission Date: 20120608
  Serious: Yes (Hospitalization)
  Sender: FDA-Public Use
  Company Number: TCI2012A00474

PATIENT
  Age: 59 Year
  Sex: Female

DRUGS (3)
  1. ALEVIATIN (PHENYTOIN) [Concomitant]
  2. LAMICTAL [Concomitant]
  3. LANSOPRAZOLE [Suspect]
     Indication: GASTROOESOPHAGEAL REFLUX DISEASE
     Dosage: 15 MG (15 MG, 1 IN 1 D) PER ORAL
     Route: 048
     Dates: start: 20111228, end: 20120110

REACTIONS (4)
  - DRUG INEFFECTIVE [None]
  - ANTICONVULSANT DRUG LEVEL INCREASED [None]
  - CONVULSION [None]
  - PANIC DISORDER [None]
